FAERS Safety Report 8563638-6 (Version None)
Quarter: 2012Q3

REPORT INFORMATION
  Report Type: 
  Country: None (occurrence: None)
  Receive Date: 20120803
  Receipt Date: 20120725
  Transmission Date: 20120928
  Serious: Yes (Hospitalization)
  Sender: FDA-Public Use
  Company Number: US-BIOGENIDEC-2012BI027731

PATIENT
  Age: 32 Year
  Sex: Female

DRUGS (1)
  1. TYSABRI [Suspect]
     Indication: MULTIPLE SCLEROSIS
     Route: 042
     Dates: start: 20120411, end: 20120615

REACTIONS (6)
  - PHARYNGEAL OEDEMA [None]
  - NAUSEA [None]
  - DYSPNOEA [None]
  - VOMITING [None]
  - FLUSHING [None]
  - INFLUENZA LIKE ILLNESS [None]
